FAERS Safety Report 14341021 (Version 1)
Quarter: 2018Q1

REPORT INFORMATION
  Report Type: Spontaneous
  Country: FR (occurrence: FR)
  Receive Date: 20180102
  Receipt Date: 20180102
  Transmission Date: 20180509
  Serious: Yes (Other)
  Sender: FDA-Public Use
  Company Number: FR-MERCK KGAA-2038073

PATIENT
  Age: 42 Year
  Sex: Female

DRUGS (1)
  1. NOVOTHYROX [Suspect]
     Active Substance: LEVOTHYROXINE SODIUM
     Indication: PRODUCT USED FOR UNKNOWN INDICATION

REACTIONS (6)
  - Anxiety [Unknown]
  - Insomnia [Unknown]
  - Somnolence [Unknown]
  - Product formulation issue [Unknown]
  - Memory impairment [Unknown]
  - Job dissatisfaction [Unknown]

NARRATIVE: CASE EVENT DATE: 20170808
